FAERS Safety Report 17878048 (Version 1)
Quarter: 2020Q2

REPORT INFORMATION
  Report Type: Spontaneous
  Country: DE (occurrence: DE)
  Receive Date: 20200609
  Receipt Date: 20200609
  Transmission Date: 20200714
  Serious: Yes (Congenital Anomaly, Other)
  Sender: FDA-Public Use
  Company Number: DE-UCBSA-2020022690

PATIENT
  Age: 1 Day
  Sex: Male
  Weight: 3.14 kg

DRUGS (3)
  1. AMOX [AMOXICILLIN] [Concomitant]
     Active Substance: AMOXICILLIN
     Indication: SINUSITIS
     Dosage: 1000 [MG/D ]/ TREATMENT OF 7 DAYS
     Route: 064
  2. VIMPAT [Suspect]
     Active Substance: LACOSAMIDE
     Indication: EPILEPSY
     Dosage: 200 [MG/D (2X100 MG) ] 2 SEPARATED DOSES
     Route: 064
     Dates: start: 20190613, end: 20200303
  3. FYCOMPA [Suspect]
     Active Substance: PERAMPANEL
     Indication: EPILEPSY
     Dosage: 4 MG DAILY
     Route: 064
     Dates: start: 20190613, end: 20200303

REACTIONS (3)
  - Ventricular septal defect [Not Recovered/Not Resolved]
  - Atrial septal defect [Not Recovered/Not Resolved]
  - Maternal exposure before pregnancy [Unknown]

NARRATIVE: CASE EVENT DATE: 201906
